FAERS Safety Report 5368851-7 (Version None)
Quarter: 2007Q2

REPORT INFORMATION
  Report Type: 
  Country: None (occurrence: None)
  Receive Date: 20070620
  Receipt Date: 20070612
  Transmission Date: 20071010
  Serious: Yes (Hospitalization)
  Sender: FDA-Public Use
  Company Number: 2007SP011668

PATIENT
  Age: 63 Year
  Sex: Female

DRUGS (3)
  1. VIRAFERONPEG [Suspect]
     Indication: HEPATITIS C
     Dosage: SC
     Route: 058
     Dates: start: 20030115, end: 20030415
  2. REBETOL [Suspect]
     Indication: HEPATITIS C
     Dosage: PO
     Route: 048
     Dates: start: 20030115, end: 20030415
  3. AMANTADINE HCL [Suspect]
     Indication: HEPATITIS C
     Dates: start: 20030115, end: 20030415

REACTIONS (3)
  - PAPILLOEDEMA [None]
  - RETINAL HAEMORRHAGE [None]
  - RETINITIS [None]
